FAERS Safety Report 4597300-1 (Version None)
Quarter: 2005Q1

REPORT INFORMATION
  Report Type: 
  Country: None (occurrence: None)
  Receive Date: 20050303
  Receipt Date: 20050221
  Transmission Date: 20050727
  Serious: Yes (Death)
  Sender: FDA-Public Use
  Company Number: 200510488EU

PATIENT
  Age: 72 Year
  Sex: Female

DRUGS (2)
  1. KETEK [Suspect]
     Indication: BACTERIAL INFECTION
     Route: 048
     Dates: start: 20050101, end: 20050104
  2. ALBUTEROL [Concomitant]

REACTIONS (3)
  - CARDIAC ARREST [None]
  - MYASTHENIA GRAVIS [None]
  - RESPIRATORY FAILURE [None]
